FAERS Safety Report 11533172 (Version 2)
Quarter: 2015Q4

REPORT INFORMATION
  Report Type: Spontaneous
  Country: US (occurrence: US)
  Receive Date: 20150921
  Receipt Date: 20151008
  Transmission Date: 20160304
  Serious: Yes (Hospitalization, Other)
  Sender: FDA-Public Use
  Company Number: US-PFIZER INC-2015311816

PATIENT
  Age: 59 Year
  Sex: Male
  Weight: 78 kg

DRUGS (5)
  1. ATORVASTATIN [Concomitant]
     Active Substance: ATORVASTATIN
     Dosage: 80 MG, 1X/DAY
     Route: 048
  2. LISINOPRIL. [Concomitant]
     Active Substance: LISINOPRIL
     Dosage: 5 MG, 1X/DAY
     Route: 048
  3. PLAVIX [Concomitant]
     Active Substance: CLOPIDOGREL BISULFATE
     Dosage: 75 MG, 1X/DAY
     Route: 048
  4. VIAGRA [Suspect]
     Active Substance: SILDENAFIL CITRATE
     Indication: ERECTILE DYSFUNCTION
     Dosage: 100 MG, AS NEEDED
     Route: 048
  5. METOPROLOL TARTRATE. [Concomitant]
     Active Substance: METOPROLOL TARTRATE
     Dosage: 25 MG, 2X/DAY
     Route: 048

REACTIONS (4)
  - Dyspnoea [Unknown]
  - Right atrial dilatation [Unknown]
  - Myocardial infarction [Unknown]
  - Sinus arrhythmia [Unknown]
